FAERS Safety Report 4546551-0 (Version None)
Quarter: 2005Q1

REPORT INFORMATION
  Report Type: 
  Country: None (occurrence: None)
  Receive Date: 20050103
  Receipt Date: 20041220
  Transmission Date: 20050727
  Serious: Yes (Other)
  Sender: FDA-Public Use
  Company Number: 2004118905

PATIENT
  Age: 73 Year
  Sex: Female
  Weight: 58.9676 kg

DRUGS (7)
  1. CELEBREX [Suspect]
     Indication: OSTEOPOROSIS
     Dosage: 200 MG (200 MG, 1 IN 1 D), ORAL
     Route: 048
     Dates: end: 20040101
  2. CONJUGATED ESTROGENS [Concomitant]
  3. HYDROCODONE (HYDROCODONE) [Concomitant]
  4. SINEMET [Concomitant]
  5. ATORVASTATIN (ATORVASTATIN) [Concomitant]
  6. RISEDRONATE SODIUM (RISEDRONATE SODIUM) [Concomitant]
  7. HYDRALAZINE HYDROCHLORIDE (HYDRALAZINE HYDROCHLORIDE) [Concomitant]

REACTIONS (11)
  - ALANINE AMINOTRANSFERASE DECREASED [None]
  - ARRHYTHMIA [None]
  - ASPARTATE AMINOTRANSFERASE DECREASED [None]
  - BASAL CELL CARCINOMA [None]
  - BLOOD OSMOLARITY DECREASED [None]
  - BLOOD PRESSURE SYSTOLIC INCREASED [None]
  - DRUG EFFECT DECREASED [None]
  - DRY SKIN [None]
  - RASH PRURITIC [None]
  - TOOTH DISORDER [None]
  - TREMOR [None]
